FAERS Safety Report 7416381-0 (Version None)
Quarter: 2011Q2

REPORT INFORMATION
  Report Type: 
  Country: None (occurrence: None)
  Receive Date: 20110414
  Receipt Date: 20110411
  Transmission Date: 20111010
  Serious: Yes (Other)
  Sender: FDA-Public Use
  Company Number: US-PFIZER INC-2011079348

PATIENT
  Sex: Male
  Weight: 116.1 kg

DRUGS (4)
  1. GABAPENTIN [Concomitant]
     Indication: GASTRIC DISORDER
     Dosage: 300 MG, 1X/DAY
  2. ALBUTEROL [Concomitant]
     Indication: ASTHMA
     Route: 055
  3. ZOLOFT [Suspect]
     Dosage: UNK
  4. METOPROLOL [Concomitant]
     Indication: HYPERTENSION
     Dosage: 50 MG, 1X/DAY

REACTIONS (3)
  - URTICARIA [None]
  - PRURITUS [None]
  - PHARYNGEAL OEDEMA [None]
